FAERS Safety Report 12580889 (Version 5)
Quarter: 2016Q4

REPORT INFORMATION
  Report Type: Report from Study
  Country: US (occurrence: US)
  Receive Date: 20160721
  Receipt Date: 20161215
  Transmission Date: 20170207
  Serious: Yes (Hospitalization)
  Sender: FDA-Public Use
  Company Number: US-PFIZER INC-2016335962

PATIENT
  Age: 74 Year
  Sex: Female
  Weight: 54 kg

DRUGS (7)
  1. SYNTHROID [Concomitant]
     Active Substance: LEVOTHYROXINE SODIUM
     Dosage: 8 MCG, UNK
     Route: 048
     Dates: start: 20160126
  2. LOPRESSOR [Concomitant]
     Active Substance: METOPROLOL TARTRATE
     Dosage: 12.5 MG, TWICE DAILY
     Route: 048
     Dates: start: 20151208
  3. ROXICODONE [Concomitant]
     Active Substance: OXYCODONE HYDROCHLORIDE
     Indication: PAIN
     Dosage: 5 MG, TWICE DAILY
     Route: 048
     Dates: start: 20151208
  4. PEPCID [Concomitant]
     Active Substance: FAMOTIDINE
     Dosage: 40 MG, DAILY
     Route: 048
     Dates: start: 20160517
  5. TAMOXIFEN CITRATE. [Suspect]
     Active Substance: TAMOXIFEN CITRATE
     Indication: BREAST CANCER METASTATIC
     Dosage: 20 MG, DAILY
     Route: 048
     Dates: start: 20160211
  6. DENOSUMAB SUBCUT [Concomitant]
     Indication: PROPHYLAXIS
     Dosage: UNK, EVERY 3 MONTHS, SKIN INJECTION
     Route: 058
     Dates: start: 20131216
  7. PALBOCICLIB [Suspect]
     Active Substance: PALBOCICLIB
     Indication: BREAST CANCER METASTATIC
     Dosage: 100 MG, DAILY
     Route: 048
     Dates: start: 20160211, end: 20160623

REACTIONS (1)
  - Abscess [Recovered/Resolved]

NARRATIVE: CASE EVENT DATE: 20160630
